FAERS Safety Report 20207101 (Version 7)
Quarter: 2022Q1

REPORT INFORMATION
  Report Type: Report from Study
  Country: DE (occurrence: None)
  Receive Date: 20211220
  Receipt Date: 20220217
  Transmission Date: 20220423
  Serious: Yes (Hospitalization)
  Sender: FDA-Public Use
  Company Number: DE-Eisai Medical Research-EC-2021-105267

PATIENT
  Age: 68 Year
  Sex: Male
  Weight: 72 kg

DRUGS (13)
  1. LENVATINIB [Suspect]
     Active Substance: LENVATINIB
     Indication: Hormone-refractory prostate cancer
     Route: 048
     Dates: start: 20211208, end: 20211212
  2. LENVATINIB [Suspect]
     Active Substance: LENVATINIB
     Dosage: STARTING DOSE AT 14 MG, FLUCTUATED DOSAGE
     Route: 048
     Dates: start: 20211216
  3. PEMBROLIZUMAB [Suspect]
     Active Substance: PEMBROLIZUMAB
     Indication: Hormone-refractory prostate cancer
     Route: 041
     Dates: start: 20211208, end: 20211208
  4. PEMBROLIZUMAB [Suspect]
     Active Substance: PEMBROLIZUMAB
     Route: 041
     Dates: start: 20211230
  5. LEVOTHYROXINE SODIUM [Concomitant]
     Active Substance: LEVOTHYROXINE SODIUM
     Dates: start: 201101
  6. PANTOPRAZOLE [Concomitant]
     Active Substance: PANTOPRAZOLE
     Dates: start: 201701
  7. CALCIGEN [CALCIUM CARBONATE;COLECALCIFEROL] [Concomitant]
     Dates: start: 201711
  8. PREDNISOLONE [Concomitant]
     Active Substance: PREDNISOLONE
     Dates: start: 201711
  9. CHOLECALCIFEROL [Concomitant]
     Active Substance: CHOLECALCIFEROL
     Dates: start: 201711
  10. MAGNESIUM [Concomitant]
     Active Substance: MAGNESIUM
     Dates: start: 201711
  11. LEUPROLIDE ACETATE [Concomitant]
     Active Substance: LEUPROLIDE ACETATE
     Route: 058
     Dates: start: 20180101
  12. XGEVA [Concomitant]
     Active Substance: DENOSUMAB
     Route: 042
     Dates: start: 20210323
  13. OLMESARTAN MEDOXOMIL [Concomitant]
     Active Substance: OLMESARTAN MEDOXOMIL
     Dates: start: 20190624, end: 20211212

REACTIONS (1)
  - Hypertension [Recovered/Resolved]

NARRATIVE: CASE EVENT DATE: 20211209
